FAERS Safety Report 14984432 (Version 1)
Quarter: 2018Q2

REPORT INFORMATION
  Report Type: Report from Study
  Country: CO (occurrence: CO)
  Receive Date: 20180607
  Receipt Date: 20180607
  Transmission Date: 20180711
  Serious: Yes (Other)
  Sender: FDA-Public Use
  Company Number: CO-ASTELLAS-2018US026036

PATIENT
  Sex: Female

DRUGS (2)
  1. ERLOTINIB [Suspect]
     Active Substance: ERLOTINIB
     Indication: LUNG NEOPLASM MALIGNANT
     Route: 048
     Dates: start: 20120224, end: 20130820
  2. ERLOTINIB [Suspect]
     Active Substance: ERLOTINIB
     Route: 048
     Dates: end: 20150901

REACTIONS (7)
  - Eye disorder [Unknown]
  - Trichomegaly [Recovering/Resolving]
  - Hair texture abnormal [Unknown]
  - Cardiac disorder [Unknown]
  - Liver disorder [Unknown]
  - Headache [Unknown]
  - Growth of eyelashes [Unknown]
